FAERS Safety Report 6448008-9 (Version None)
Quarter: 2009Q4

REPORT INFORMATION
  Report Type: 
  Country: None (occurrence: None)
  Receive Date: 20091120
  Receipt Date: 20091105
  Transmission Date: 20100525
  Serious: Yes (Death)
  Sender: FDA-Public Use
  Company Number: JP-ROCHE-665839

PATIENT
  Age: 58 Year
  Sex: Male

DRUGS (2)
  1. REBETOL [Suspect]
     Route: 048
     Dates: start: 20080601
  2. PEG-INTRON [Suspect]
     Route: 058
     Dates: start: 20080601

REACTIONS (3)
  - ABDOMINAL DISTENSION [None]
  - BILE DUCT CANCER [None]
  - DECREASED APPETITE [None]
